FAERS Safety Report 18957691 (Version 5)
Quarter: 2023Q4

REPORT INFORMATION
  Report Type: Spontaneous
  Country: US (occurrence: US)
  Receive Date: 20210302
  Receipt Date: 20231228
  Transmission Date: 20240110
  Serious: Yes (Hospitalization)
  Sender: FDA-Public Use
  Company Number: US-SA-2021SA065303

PATIENT
  Age: 45 Year
  Sex: Female
  Weight: 101 kg

DRUGS (1)
  1. DUPIXENT [Suspect]
     Active Substance: DUPILUMAB
     Indication: Asthma
     Dosage: 300 MG, QOW
     Route: 058
     Dates: start: 20210209

REACTIONS (11)
  - Asthma [Unknown]
  - Headache [Unknown]
  - Oral mucosal eruption [Unknown]
  - Dyspnoea [Unknown]
  - Diarrhoea [Unknown]
  - Fatigue [Unknown]
  - COVID-19 [Unknown]
  - Sleep disorder due to a general medical condition [Unknown]
  - Pain [Unknown]
  - Oropharyngeal pain [Unknown]
  - Rash [Unknown]

NARRATIVE: CASE EVENT DATE: 20210101
